FAERS Safety Report 8240577-1 (Version None)
Quarter: 2012Q1

REPORT INFORMATION
  Report Type: 
  Country: None (occurrence: None)
  Receive Date: 20120328
  Receipt Date: 20120320
  Transmission Date: 20120608
  Serious: Yes (Other)
  Sender: FDA-Public Use
  Company Number: DE-ROCHE-1051455

PATIENT
  Age: 19 Year

DRUGS (1)
  1. MABTHERA [Suspect]
     Indication: GLOMERULONEPHRITIS

REACTIONS (2)
  - GRAND MAL CONVULSION [None]
  - POSTERIOR REVERSIBLE ENCEPHALOPATHY SYNDROME [None]
